FAERS Safety Report 22342441 (Version 1)
Quarter: 2023Q2

REPORT INFORMATION
  Report Type: Spontaneous
  Country: JP (occurrence: JP)
  Receive Date: 20230519
  Receipt Date: 20230519
  Transmission Date: 20230722
  Serious: Yes (Other)
  Sender: FDA-Public Use
  Company Number: JP-MLMSERVICE-20230428-4240176-1

PATIENT

DRUGS (15)
  1. ATORVASTATIN [Suspect]
     Active Substance: ATORVASTATIN
     Indication: Hypertriglyceridaemia
     Route: 065
     Dates: start: 2018
  2. ATORVASTATIN [Suspect]
     Active Substance: ATORVASTATIN
     Route: 065
     Dates: start: 20160205, end: 2018
  3. PEMAFIBRATE [Suspect]
     Active Substance: PEMAFIBRATE
     Indication: Hypertriglyceridaemia
     Route: 065
     Dates: start: 2019
  4. CLOPIDOGREL [Concomitant]
     Active Substance: CLOPIDOGREL BISULFATE
     Route: 065
  5. EZETIMIBE [Concomitant]
     Active Substance: EZETIMIBE
     Route: 065
     Dates: start: 2018
  6. ULTIMASTER [Concomitant]
     Dosage: 4.0 MM X 28 MM, 2.25 MM X 21 MM
     Route: 065
     Dates: start: 20181003
  7. ASPIRIN [Concomitant]
     Active Substance: ASPIRIN
     Route: 065
     Dates: start: 2018
  8. ASPIRIN [Concomitant]
     Active Substance: ASPIRIN
  9. BISOPROLOL [Concomitant]
     Active Substance: BISOPROLOL
     Route: 065
  10. PRASUGREL [Concomitant]
     Active Substance: PRASUGREL
     Route: 065
     Dates: start: 2018
  11. PRASUGREL [Concomitant]
     Active Substance: PRASUGREL
  12. LINAGLIPTIN [Concomitant]
     Active Substance: LINAGLIPTIN
     Route: 065
  13. ENALAPRIL [Concomitant]
     Active Substance: ENALAPRIL
     Route: 065
  14. METFORMIN [Concomitant]
     Active Substance: METFORMIN HYDROCHLORIDE
     Route: 065
  15. VOGLIBOSE [Concomitant]
     Active Substance: VOGLIBOSE
     Route: 065

REACTIONS (1)
  - Arteriosclerosis [Unknown]
